FAERS Safety Report 15210116 (Version 1)
Quarter: 2018Q3

REPORT INFORMATION
  Report Type: Spontaneous
  Country: US (occurrence: US)
  Receive Date: 20180629
  Receipt Date: 20180629
  Transmission Date: 20181010
  Serious: Yes (Disabling, Other)
  Sender: FDA-Public Use
  Company Number: None

PATIENT
  Age: 73 Year
  Sex: Female
  Weight: 90.9 kg

DRUGS (2)
  1. METROPROLOL SUCC [Suspect]
     Active Substance: METOPROLOL SUCCINATE
     Indication: HYPERTENSION
     Dosage: ?          QUANTITY:1 TABLET(S);?
     Route: 048
     Dates: start: 20180313, end: 20180609
  2. METROPROLOL SUCC [Suspect]
     Active Substance: METOPROLOL SUCCINATE
     Indication: ATRIOVENTRICULAR BLOCK
     Dosage: ?          QUANTITY:1 TABLET(S);?
     Route: 048
     Dates: start: 20180313, end: 20180609

REACTIONS (7)
  - Drug prescribing error [None]
  - Rash [None]
  - Blister [None]
  - Pain [None]
  - Fatigue [None]
  - Pruritus [None]
  - Sensory disturbance [None]

NARRATIVE: CASE EVENT DATE: 20180313
